FAERS Safety Report 4845468-1 (Version None)
Quarter: 2005Q4

REPORT INFORMATION
  Report Type: 
  Country: None (occurrence: None)
  Receive Date: 20051201
  Receipt Date: 20051118
  Transmission Date: 20060501
  Serious: Yes (Hospitalization)
  Sender: FDA-Public Use
  Company Number: MK200511-0245-1

PATIENT
  Age: 55 Year
  Sex: Female

DRUGS (1)
  1. OPTIRAY 320 [Suspect]
     Indication: COMPUTERISED TOMOGRAM
     Dosage: 100 ML, ONE TIME, IV
     Route: 042
     Dates: start: 20051001, end: 20051001

REACTIONS (1)
  - WRONG TECHNIQUE IN DRUG USAGE PROCESS [None]
